FAERS Safety Report 5154972-0 (Version None)
Quarter: 2006Q4

REPORT INFORMATION
  Report Type: 
  Country: None (occurrence: None)
  Receive Date: 20061121
  Receipt Date: 20060828
  Transmission Date: 20070319
  Serious: Yes (Death, Life-Threatening, Other)
  Sender: FDA-Public Use
  Company Number: US-ELI_LILLY_AND_COMPANY-US200608006456

PATIENT
  Age: 75 Year
  Sex: Male
  Weight: 95.918 kg

DRUGS (16)
  1. ALIMTA [Suspect]
     Indication: LUNG ADENOCARCINOMA STAGE IV
     Dosage: 1000 MG, UNK
     Route: 042
     Dates: start: 20060717, end: 20060828
  2. ARANESP                                 /UNK/ [Concomitant]
     Indication: ANAEMIA
     Dates: end: 20060101
  3. HYDROCORTISONE [Concomitant]
     Dosage: 50 MG, DAILY (1/D)
     Dates: start: 20060725
  4. FLORINEF [Concomitant]
     Indication: ADRENAL INSUFFICIENCY
     Dosage: 0.1 MG, DAILY (1/D)
     Dates: start: 20060725
  5. PREGABALIN [Concomitant]
     Dosage: 50 MG, 2/D
     Dates: start: 20060808
  6. LASIX [Concomitant]
     Dosage: 40 MG, DAILY (1/D)
     Dates: start: 20060808
  7. POTASSIUM ACETATE [Concomitant]
     Dosage: 10 MEQ, DAILY (1/D)
  8. VITAMIN B-12 [Concomitant]
     Dosage: 100 UG, UNK
     Dates: start: 20060710
  9. FOLIC ACID [Concomitant]
     Dosage: 1 MG, DAILY (1/D)
     Dates: start: 20060710
  10. CORTICOSTEROID NOS [Concomitant]
     Dosage: 8 MG, UNK
     Dates: start: 20060716
  11. CISPLATIN [Concomitant]
     Indication: LUNG ADENOCARCINOMA STAGE IV
     Dosage: 120 MG, UNK
     Dates: start: 20060717
  12. COMPAZINE [Concomitant]
  13. HYCODAN [Concomitant]
     Dosage: UNK, AS NEEDED
  14. LEXAPRO                                 /USA/ [Concomitant]
     Dates: start: 20060129
  15. ANZEMET [Concomitant]
  16. SEREVENT [Concomitant]

REACTIONS (8)
  - ANGIONEUROTIC OEDEMA [None]
  - COUGH [None]
  - HYPOTENSION [None]
  - LUNG ADENOCARCINOMA STAGE IV [None]
  - PNEUMONIA [None]
  - RASH [None]
  - URTICARIA [None]
  - WHEEZING [None]
